FAERS Safety Report 17811669 (Version 1)
Quarter: 2020Q2

REPORT INFORMATION
  Report Type: Spontaneous
  Country: RU (occurrence: RU)
  Receive Date: 20200521
  Receipt Date: 20200521
  Transmission Date: 20200714
  Serious: Yes (Hospitalization)
  Sender: FDA-Public Use
  Company Number: RU-TEVA-2020-RU-1238017

PATIENT
  Age: 37 Year
  Sex: Male
  Weight: 110 kg

DRUGS (23)
  1. TARKA [Concomitant]
     Active Substance: TRANDOLAPRIL\VERAPAMIL HYDROCHLORIDE
     Indication: HYPERTENSION
     Route: 048
     Dates: end: 20161112
  2. CORAXAN [Concomitant]
     Indication: CARDIAC FAILURE CHRONIC
     Route: 048
     Dates: start: 20161112, end: 20161122
  3. TAVANIC [Concomitant]
     Active Substance: LEVOFLOXACIN
     Route: 048
     Dates: start: 20161106, end: 20161111
  4. VILPRAFEN [Concomitant]
     Route: 048
     Dates: start: 20161119, end: 20161121
  5. LANTUS [Concomitant]
     Active Substance: INSULIN GLARGINE
     Indication: DIABETES MELLITUS
     Route: 058
  6. TIENAM [Concomitant]
     Active Substance: CILASTATIN SODIUM\IMIPENEM
     Indication: ERYSIPELAS
     Route: 042
     Dates: start: 20161111, end: 20161216
  7. LORISTA [Concomitant]
     Active Substance: LOSARTAN POTASSIUM
     Indication: HYPERTENSION
     Route: 048
     Dates: start: 20161112, end: 20161122
  8. INSUMAN RAPID GT [Concomitant]
     Active Substance: INSULIN HUMAN
     Indication: DIABETES MELLITUS
     Route: 058
     Dates: start: 20161116
  9. GALVUS [Concomitant]
     Active Substance: VILDAGLIPTIN
     Indication: DIABETES MELLITUS
     Route: 048
     Dates: end: 20161116
  10. NIPERTEN [Concomitant]
     Indication: HYPERTENSION
     Route: 048
     Dates: start: 20161111, end: 20161122
  11. MEXIDOL [Concomitant]
     Active Substance: EMOXYPINE SUCCINATE
     Indication: PARAPARESIS
     Route: 030
     Dates: start: 20161109, end: 20161111
  12. ACETYLSALICYLIC ACID [Concomitant]
     Active Substance: ASPIRIN
     Indication: THROMBOSIS
     Route: 048
     Dates: start: 20161119, end: 20161121
  13. AMBROXOL-3T [Concomitant]
     Indication: PNEUMONIA
     Route: 048
     Dates: start: 20161121, end: 20161122
  14. MEROPENEM. [Concomitant]
     Active Substance: MEROPENEM
     Indication: SEPSIS
     Route: 042
     Dates: start: 20161117, end: 20161120
  15. METFORMIN [Concomitant]
     Active Substance: METFORMIN HYDROCHLORIDE
     Indication: DIABETES MELLITUS
     Route: 048
  16. OMEZ [Concomitant]
     Active Substance: OMEPRAZOLE
     Indication: GASTROINTESTINAL DISORDER PROPHYLAXIS
     Route: 048
     Dates: start: 20161111, end: 20161122
  17. SUMAMED [Suspect]
     Active Substance: AZITHROMYCIN ANHYDROUS
     Indication: PNEUMONIA
     Dosage: 500 MILLIGRAM DAILY; TOTAL DOSE TAKEN BEFORE THE AE: 1000 MG
     Route: 042
     Dates: start: 20161121, end: 20161122
  18. CLEXANE [Concomitant]
     Active Substance: ENOXAPARIN SODIUM
     Indication: PULMONARY EMBOLISM
     Route: 058
     Dates: start: 20161111
  19. LASIX [Concomitant]
     Active Substance: FUROSEMIDE
     Indication: CARDIAC FAILURE CHRONIC
     Route: 042
     Dates: start: 20161111, end: 20161122
  20. VEROSPIRON [Concomitant]
     Active Substance: SPIRONOLACTONE
     Indication: CARDIAC FAILURE CHRONIC
     Route: 048
     Dates: start: 20161112, end: 20161122
  21. CEFEPIM [Concomitant]
     Active Substance: CEFEPIME HYDROCHLORIDE
     Indication: PNEUMONIA
     Route: 042
     Dates: start: 20161120
  22. FORSYGA [Concomitant]
     Indication: DIABETES MELLITUS
     Route: 048
     Dates: end: 20161116
  23. ACTOVEGIN [Concomitant]
     Active Substance: BLOOD, BOVINE
     Indication: PARAPARESIS
     Route: 042
     Dates: start: 20161109, end: 20161122

REACTIONS (4)
  - Blood pressure decreased [Recovering/Resolving]
  - Asthenia [Recovering/Resolving]
  - Dyspnoea [Recovering/Resolving]
  - Hyperhidrosis [Recovering/Resolving]

NARRATIVE: CASE EVENT DATE: 20161122
